FAERS Safety Report 10084075 (Version 1)
Quarter: 2014Q2

REPORT INFORMATION
  Report Type: Spontaneous
  Country: US (occurrence: US)
  Receive Date: 20140417
  Receipt Date: 20140417
  Transmission Date: 20141212
  Serious: Yes (Other)
  Sender: FDA-Public Use
  Company Number: US-CELGENEUS-163-20785-14041246

PATIENT
  Sex: Male

DRUGS (1)
  1. THALOMID [Suspect]
     Indication: PLASMA CELL MYELOMA
     Dosage: 50 MILLIGRAM
     Route: 048
     Dates: start: 201402

REACTIONS (5)
  - Heart rate abnormal [Unknown]
  - Head injury [Unknown]
  - Loss of consciousness [Unknown]
  - Pulmonary thrombosis [Unknown]
  - Convulsion [Unknown]
